FAERS Safety Report 18147163 (Version 3)
Quarter: 2020Q3

REPORT INFORMATION
  Report Type: Report from Study
  Country: FR (occurrence: FR)
  Receive Date: 20200813
  Receipt Date: 20200908
  Transmission Date: 20201103
  Serious: Yes (Other)
  Sender: FDA-Public Use
  Company Number: FR-SA-2020SA123494

PATIENT

DRUGS (8)
  1. LOVENOX [LEVOFLOXACIN] [Concomitant]
     Active Substance: LEVOFLOXACIN
     Indication: PROPHYLAXIS
     Dosage: 4000 IU, QD
     Route: 002
     Dates: start: 20200429
  2. SARILUMAB [Suspect]
     Active Substance: SARILUMAB
     Indication: COVID-19
     Dosage: INFUSION RATE OF 100 ML/H (INTENDED DOSE: 1 BAG), 1X
     Route: 042
     Dates: start: 20200429, end: 20200429
  3. PARACETAMOL [Concomitant]
     Active Substance: ACETAMINOPHEN
     Indication: PRE-EXISTING DISEASE
     Dosage: 1000 MG, PRN
     Route: 002
     Dates: start: 20200429
  4. PIPERACILLIN. [Concomitant]
     Active Substance: PIPERACILLIN SODIUM
     Indication: PROPHYLAXIS
     Dosage: 4 G, QD
     Route: 042
     Dates: start: 20200429, end: 20200429
  5. TAZOBACTAM [Concomitant]
     Active Substance: TAZOBACTAM
     Indication: PROPHYLAXIS
     Dosage: 500 MG, QD
     Route: 042
     Dates: start: 20200429, end: 20200429
  6. DUPHALAC [Concomitant]
     Active Substance: LACTULOSE
     Indication: PROPHYLAXIS
     Dosage: 10 G, BID
     Route: 002
     Dates: start: 20200429
  7. ALPRAZOLAM. [Concomitant]
     Active Substance: ALPRAZOLAM
     Indication: PROPHYLAXIS
     Dosage: 0.25 MG, QD
     Route: 002
     Dates: start: 20200429
  8. SARILUMAB [Suspect]
     Active Substance: SARILUMAB
     Dosage: 400 MG, 1X (INFUSION RATE OF 30 ML/H (INTENDED DOSE: 1 BAG))
     Route: 042
     Dates: start: 20200429, end: 20200429

REACTIONS (2)
  - Leukopenia [Recovering/Resolving]
  - Neutropenia [Recovered/Resolved]

NARRATIVE: CASE EVENT DATE: 20200505
